FAERS Safety Report 8127257-8 (Version None)
Quarter: 2012Q1

REPORT INFORMATION
  Report Type: 
  Country: None (occurrence: None)
  Receive Date: 20120210
  Receipt Date: 20120203
  Transmission Date: 20120608
  Serious: Yes (Other)
  Sender: FDA-Public Use
  Company Number: PHHY2011JP104924

PATIENT
  Age: 3 Year
  Sex: Female

DRUGS (2)
  1. CLOBAZAM [Suspect]
     Indication: CONVULSION
     Route: 048
  2. TEGRETOL [Suspect]
     Indication: CONVULSION
     Route: 048

REACTIONS (1)
  - ATYPICAL BENIGN PARTIAL EPILEPSY [None]
